FAERS Safety Report 19954315 (Version 1)
Quarter: 2021Q4

REPORT INFORMATION
  Report Type: Spontaneous
  Country: PL (occurrence: PL)
  Receive Date: 20211013
  Receipt Date: 20211013
  Transmission Date: 20220303
  Serious: Yes (Other)
  Sender: FDA-Public Use
  Company Number: PL-PFIZER INC-2021696317

PATIENT
  Age: 26 Year

DRUGS (6)
  1. MIANSERIN [Interacting]
     Active Substance: MIANSERIN
     Indication: Insomnia
     Dosage: 30 MG, DAILY
     Route: 065
  2. MIANSERIN [Interacting]
     Active Substance: MIANSERIN
     Indication: Depression
  3. SERTRALINE [Interacting]
     Active Substance: SERTRALINE HYDROCHLORIDE
     Indication: Depression
     Dosage: 100 MG, DAILY
     Route: 065
  4. SERTRALINE [Interacting]
     Active Substance: SERTRALINE HYDROCHLORIDE
     Indication: Insomnia
  5. OMEPRAZOLE [Interacting]
     Active Substance: OMEPRAZOLE
     Indication: Product used for unknown indication
     Dosage: UNK
     Route: 048
  6. BUTYLSCOPOLAMINE BROMIDE [Interacting]
     Active Substance: BUTYLSCOPOLAMINE BROMIDE
     Indication: Product used for unknown indication
     Dosage: UNK
     Route: 065

REACTIONS (2)
  - Levator syndrome [Recovered/Resolved]
  - Drug interaction [Recovered/Resolved]
